FAERS Safety Report 6066345-7 (Version None)
Quarter: 2009Q1

REPORT INFORMATION
  Report Type: 
  Country: None (occurrence: None)
  Receive Date: 20090203
  Receipt Date: 20090120
  Transmission Date: 20090719
  Serious: Yes (Hospitalization)
  Sender: FDA-Public Use
  Company Number: KV200900116

PATIENT
  Age: 77 Year
  Sex: Female
  Weight: 63.5 kg

DRUGS (7)
  1. ISOSORBIDE MONONITRATE [Suspect]
     Indication: HYPERTENSION
     Dosage: 30 MG,BID,ORAL
     Route: 048
     Dates: start: 20050101
  2. PROTONIX [Concomitant]
  3. MIACALCIN [Concomitant]
  4. DILACOR (VERAPAMIL HYDROCHLORIDE) [Concomitant]
  5. ZOCOR [Concomitant]
  6. ZOLOFT [Concomitant]
  7. LEVOTHYROXINE SODIUM [Concomitant]

REACTIONS (3)
  - GAIT DISTURBANCE [None]
  - HYPOTENSION [None]
  - PRODUCT QUALITY ISSUE [None]
